FAERS Safety Report 11603610 (Version 1)
Quarter: 2015Q4

REPORT INFORMATION
  Report Type: Report from Study
  Country: US (occurrence: US)
  Receive Date: 20151007
  Receipt Date: 20151007
  Transmission Date: 20160304
  Serious: Yes (Other)
  Sender: FDA-Public Use
  Company Number: US-ROCHE-1371964

PATIENT
  Age: 56 Year
  Sex: Male
  Weight: 99 kg

DRUGS (3)
  1. SINGULAIR [Concomitant]
     Active Substance: MONTELUKAST SODIUM
     Route: 065
  2. ALLEGRA-D [Concomitant]
     Active Substance: FEXOFENADINE\PSEUDOEPHEDRINE
  3. XOLAIR [Suspect]
     Active Substance: OMALIZUMAB
     Indication: ASTHMA
     Route: 058

REACTIONS (5)
  - Nasal discomfort [Unknown]
  - Anaphylactic reaction [Unknown]
  - Productive cough [Unknown]
  - Upper respiratory tract congestion [Unknown]
  - Drug dose omission [Unknown]

NARRATIVE: CASE EVENT DATE: 20080923
